FAERS Safety Report 11718215 (Version 1)
Quarter: 2015Q4

REPORT INFORMATION
  Report Type: Spontaneous
  Country: JP (occurrence: JP)
  Receive Date: 20151110
  Receipt Date: 20151110
  Transmission Date: 20160304
  Serious: Yes (Hospitalization)
  Sender: FDA-Public Use
  Company Number: JP-NOVOPROD-415027

PATIENT
  Age: 70 Year
  Sex: Female
  Weight: 43 kg

DRUGS (7)
  1. ESCITALOPRAM OXALATE. [Concomitant]
     Active Substance: ESCITALOPRAM OXALATE
     Indication: DEPRESSION
     Dosage: 10 MG, QD
     Route: 048
     Dates: start: 201302
  2. TRESIBA CHU [Suspect]
     Active Substance: INSULIN DEGLUDEC
     Dosage: 300IU
     Route: 058
     Dates: start: 20140630
  3. HUMALOG [Suspect]
     Active Substance: INSULIN LISPRO
     Dosage: 20 U, QD(10-4-6 U/DAY)
     Route: 058
  4. HUMALOG [Suspect]
     Active Substance: INSULIN LISPRO
     Dosage: 300IU
     Route: 058
     Dates: start: 20140630, end: 20140630
  5. HUMALOG [Suspect]
     Active Substance: INSULIN LISPRO
     Indication: TYPE 1 DIABETES MELLITUS
     Dosage: 16 U, QD (8-2-6 U/DAY)
     Route: 058
     Dates: start: 201303
  6. HUMALOG [Suspect]
     Active Substance: INSULIN LISPRO
     Dosage: 14 U, QD  (10-4-6 U/DAY)
     Route: 058
  7. TRESIBA CHU [Suspect]
     Active Substance: INSULIN DEGLUDEC
     Indication: TYPE 1 DIABETES MELLITUS
     Dosage: 10 U, QD
     Route: 058
     Dates: start: 201303

REACTIONS (3)
  - Hypoglycaemia [Recovered/Resolved]
  - Intentional overdose [Unknown]
  - Suicide attempt [Unknown]

NARRATIVE: CASE EVENT DATE: 20140630
